FAERS Safety Report 14020354 (Version 5)
Quarter: 2018Q3

REPORT INFORMATION
  Report Type: Spontaneous
  Country: ES (occurrence: ES)
  Receive Date: 20170928
  Receipt Date: 20180823
  Transmission Date: 20181010
  Serious: Yes (Hospitalization, Other)
  Sender: FDA-Public Use
  Company Number: ES-TEVA-809007ROM

PATIENT
  Age: 72 Year
  Sex: Male

DRUGS (6)
  1. CLARITHROMYCIN. [Interacting]
     Active Substance: CLARITHROMYCIN
     Indication: RESPIRATORY TRACT INFECTION
     Dosage: 500 MILLIGRAM DAILY;
     Route: 065
  2. ATORVASTATIN [Suspect]
     Active Substance: ATORVASTATIN
     Indication: ANGINA UNSTABLE
     Dosage: 40 MILLIGRAM DAILY;
     Route: 065
  3. BISOPROLOL [Concomitant]
     Active Substance: BISOPROLOL
     Indication: ANGINA UNSTABLE
     Dosage: 5 MILLIGRAM DAILY;
     Route: 065
  4. ENALAPRIL [Concomitant]
     Active Substance: ENALAPRIL
     Indication: ANGINA UNSTABLE
     Dosage: 20 MILLIGRAM DAILY;
     Route: 065
  5. TICAGRELOR. [Interacting]
     Active Substance: TICAGRELOR
     Indication: ANGINA UNSTABLE
     Dosage: 180 MILLIGRAM DAILY;
     Route: 065
  6. ASPIRIN. [Concomitant]
     Active Substance: ASPIRIN
     Indication: ANGINA UNSTABLE
     Dosage: 300 MILLIGRAM DAILY;
     Route: 065

REACTIONS (3)
  - Drug interaction [Recovering/Resolving]
  - Rhabdomyolysis [Recovering/Resolving]
  - Chest pain [Recovering/Resolving]
